FAERS Safety Report 9843554 (Version 1)
Quarter: 2013Q4

REPORT INFORMATION
  Report Type: Spontaneous
  Country: US (occurrence: None)
  Receive Date: 20131219
  Receipt Date: 20131219
  Transmission Date: 20140711
  Serious: Yes (Other)
  Sender: FDA-Public Use
  Company Number: 163-20785-13033204

PATIENT
  Age: 50 Year
  Sex: Male

DRUGS (1)
  1. THALOMID [Suspect]
     Indication: LICHEN PLANUS

REACTIONS (1)
  - Hernia [None]
